FAERS Safety Report 17711590 (Version 1)
Quarter: 2020Q2

REPORT INFORMATION
  Report Type: Spontaneous
  Country: US (occurrence: US)
  Receive Date: 20200427
  Receipt Date: 20200427
  Transmission Date: 20200714
  Serious: No
  Sender: FDA-Public Use
  Company Number: US-BIO PRODUCTS LABORATORY LTD-2083162

PATIENT
  Age: 37 Year
  Sex: Female

DRUGS (2)
  1. GAMMAPLEX [Suspect]
     Active Substance: HUMAN IMMUNOGLOBULIN G
     Indication: NEUROPATHY PERIPHERAL
     Route: 042
     Dates: end: 20200323
  2. PRE-MEDS (UNSPECIFIED) [Concomitant]

REACTIONS (6)
  - Nausea [Recovering/Resolving]
  - Pain [Recovering/Resolving]
  - Photophobia [Recovering/Resolving]
  - Off label use [Recovering/Resolving]
  - Vomiting [Recovering/Resolving]
  - Blood pressure increased [Recovering/Resolving]
